FAERS Safety Report 7884276-4 (Version None)
Quarter: 2011Q4

REPORT INFORMATION
  Report Type: 
  Country: None (occurrence: None)
  Receive Date: 20111102
  Receipt Date: 20111028
  Transmission Date: 20120403
  Serious: Yes (Other)
  Sender: FDA-Public Use
  Company Number: US-PFIZER INC-2011265612

PATIENT

DRUGS (2)
  1. GABAPENTIN [Suspect]
     Indication: ARTHRITIS
     Dosage: UNK
  2. VICODIN [Suspect]
     Dosage: UNK

REACTIONS (3)
  - SEIZURE LIKE PHENOMENA [None]
  - DYSKINESIA [None]
  - SLEEP DISORDER [None]
